FAERS Safety Report 7752455-2 (Version None)
Quarter: 2011Q3

REPORT INFORMATION
  Report Type: 
  Country: None (occurrence: None)
  Receive Date: 20110915
  Receipt Date: 20110912
  Transmission Date: 20111222
  Serious: Yes (Other)
  Sender: FDA-Public Use
  Company Number: PHHY2011IT81487

PATIENT
  Sex: Male

DRUGS (4)
  1. DOCETAXEL [Concomitant]
     Indication: PROSTATE CANCER
     Dosage: UNK UKN, UNK
     Route: 042
     Dates: start: 20090224, end: 20090619
  2. COSUDEX [Concomitant]
     Indication: PROSTATE CANCER
     Dosage: UNK UKN, UNK
     Route: 048
  3. ZOMETA [Suspect]
     Indication: METASTASES TO BONE
     Dosage: 4 MG, QMO
     Route: 042
     Dates: start: 20091014, end: 20110406
  4. LEUPROLIDE ACETATE [Concomitant]
     Indication: PROSTATE CANCER
     Dosage: UNK UKN, UNK
     Route: 030

REACTIONS (2)
  - OSTEONECROSIS OF JAW [None]
  - BONE FISTULA [None]
